FAERS Safety Report 14161621 (Version 1)
Quarter: 2017Q4

REPORT INFORMATION
  Report Type: Spontaneous
  Country: US (occurrence: US)
  Receive Date: 20171104
  Receipt Date: 20171104
  Transmission Date: 20180321
  Serious: Yes (Hospitalization, Other)
  Sender: FDA-Public Use
  Company Number: None

PATIENT
  Sex: Male
  Weight: 67.5 kg

DRUGS (10)
  1. GINKGO BILOBA [Concomitant]
     Active Substance: GINKGO
  2. INVOKANA [Suspect]
     Active Substance: CANAGLIFLOZIN
     Indication: DIABETES MELLITUS
     Dosage: ?          QUANTITY:1 TABLET(S);?
     Route: 048
     Dates: start: 20150501, end: 20160925
  3. METFORMIN [Concomitant]
     Active Substance: METFORMIN HYDROCHLORIDE
  4. ZANTAC [Concomitant]
     Active Substance: RANITIDINE HYDROCHLORIDE
  5. ALLEGRA [Concomitant]
     Active Substance: FEXOFENADINE HYDROCHLORIDE
  6. PRILOSEC [Concomitant]
     Active Substance: OMEPRAZOLE MAGNESIUM
  7. FISH OILS [Concomitant]
  8. MULTIVITAMINS [Concomitant]
     Active Substance: VITAMINS
  9. PRAVASTATIN. [Concomitant]
     Active Substance: PRAVASTATIN
  10. FENOFIBRATE. [Concomitant]
     Active Substance: FENOFIBRATE

REACTIONS (6)
  - Sepsis [None]
  - Asthenia [None]
  - Pancreatitis [None]
  - Dizziness [None]
  - Diabetic ketoacidosis [None]
  - Abdominal pain upper [None]

NARRATIVE: CASE EVENT DATE: 20160925
